FAERS Safety Report 9699153 (Version 1)
Quarter: 2013Q4

REPORT INFORMATION
  Report Type: Spontaneous
  Country: US (occurrence: US)
  Receive Date: 20131120
  Receipt Date: 20131120
  Transmission Date: 20140711
  Serious: No
  Sender: FDA-Public Use
  Company Number: US-GILEAD-2007-0014692

PATIENT
  Age: 35 Year
  Sex: Female
  Weight: 63.5 kg

DRUGS (11)
  1. LETAIRIS [Suspect]
     Indication: PULMONARY ARTERIAL HYPERTENSION
     Route: 048
     Dates: start: 20070920
  2. REVATIO [Concomitant]
     Indication: PULMONARY ARTERIAL HYPERTENSION
     Route: 048
  3. LASIX [Concomitant]
     Indication: PULMONARY ARTERIAL HYPERTENSION
     Route: 048
  4. PREDNISONE [Concomitant]
     Indication: PULMONARY ARTERIAL HYPERTENSION
     Route: 048
  5. PREDNISONE [Concomitant]
     Indication: HYPERSENSITIVITY
  6. C-QUINACRINE [Concomitant]
     Indication: RENAL CANCER
     Route: 048
  7. MYFORTIC [Concomitant]
     Indication: ULCER
     Route: 048
  8. COUMADIN [Concomitant]
     Indication: ANTICOAGULATION DRUG LEVEL
     Route: 048
  9. POTASSIUM CHLORIDE [Concomitant]
     Indication: HYPOKALAEMIA
     Route: 048
  10. PRILOSEC [Concomitant]
     Indication: GASTROOESOPHAGEAL REFLUX DISEASE
     Route: 048
  11. PEPCID [Concomitant]
     Indication: GASTROOESOPHAGEAL REFLUX DISEASE
     Route: 048

REACTIONS (1)
  - Urticaria [Not Recovered/Not Resolved]
